FAERS Safety Report 11416218 (Version 1)
Quarter: 2015Q3

REPORT INFORMATION
  Report Type: Spontaneous
  Country: US (occurrence: None)
  Receive Date: 20150824
  Receipt Date: 20150824
  Transmission Date: 20151125
  Serious: Yes (Disabling)
  Sender: FDA-Public Use
  Company Number: None

PATIENT
  Age: 61 Year
  Sex: Male
  Weight: 92.99 kg

DRUGS (5)
  1. OMEPRAZOLE. [Concomitant]
     Active Substance: OMEPRAZOLE
  2. VEGETARIAN CALCIUM [Concomitant]
  3. ASPIRIN. [Concomitant]
     Active Substance: ASPIRIN
  4. COQ10 [Concomitant]
     Active Substance: UBIDECARENONE
  5. LIVALO [Suspect]
     Active Substance: PITAVASTATIN CALCIUM
     Indication: BLOOD CHOLESTEROL INCREASED
     Route: 048
     Dates: start: 20140501, end: 20140926

REACTIONS (14)
  - Dizziness [None]
  - Confusional state [None]
  - Memory impairment [None]
  - Asthenia [None]
  - Fatigue [None]
  - Myopathy [None]
  - Road traffic accident [None]
  - Muscle spasms [None]
  - Balance disorder [None]
  - Muscular weakness [None]
  - Somnolence [None]
  - Fall [None]
  - Cognitive disorder [None]
  - Wrist fracture [None]

NARRATIVE: CASE EVENT DATE: 20140912
